FAERS Safety Report 8823312 (Version 1)
Quarter: 2012Q4

REPORT INFORMATION
  Report Type: 
  Country: US (occurrence: US)
  Receive Date: 20121003
  Receipt Date: 20121003
  Transmission Date: 20130627
  Serious: Yes (Other)
  Sender: FDA-Public Use
  Company Number: US-ROCHE-1131923

PATIENT
  Sex: Male

DRUGS (4)
  1. RITUXAN [Suspect]
     Indication: ANAEMIA HAEMOLYTIC AUTOIMMUNE
     Dosage: started on an unspecified date and discontinued
     Route: 065
  2. RITUXAN [Suspect]
     Indication: OFF LABEL USE
     Dosage: restarted due to fall in MCV to 100
     Route: 065
  3. PREDNISONE [Concomitant]
  4. CYTOXAN [Concomitant]

REACTIONS (2)
  - Pulmonary embolism [Unknown]
  - Dyspnoea [Unknown]
